FAERS Safety Report 8622584-X (Version None)
Quarter: 2012Q3

REPORT INFORMATION
  Report Type: 
  Country: None (occurrence: None)
  Receive Date: 20120809
  Receipt Date: 20120802
  Transmission Date: 20120928
  Serious: Yes (Hospitalization)
  Sender: FDA-Public Use
  Company Number: COM-000454

PATIENT
  Age: 82 Year
  Sex: Female
  Weight: 60.3284 kg

DRUGS (4)
  1. FUROSEMIDE [Concomitant]
  2. SIMVASTATIN [Concomitant]
  3. DOCUSATE SODIUM 100MG SOFTGEL/BANNER [Suspect]
     Indication: CONSTIPATION
     Dosage: 100MG,AS REQUIRED,ORALLY
     Route: 048
     Dates: start: 20120702, end: 20120801
  4. LISINOPRIL [Concomitant]

REACTIONS (1)
  - BLOOD PRESSURE INCREASED [None]
